FAERS Safety Report 8237198-3 (Version None)
Quarter: 2012Q1

REPORT INFORMATION
  Report Type: 
  Country: None (occurrence: None)
  Receive Date: 20120327
  Receipt Date: 20120327
  Transmission Date: 20120608
  Serious: Yes (Hospitalization)
  Sender: FDA-Public Use
  Company Number: None

PATIENT
  Age: 75 Year
  Sex: Female
  Weight: 64.5 kg

DRUGS (14)
  1. SYLATRON [Concomitant]
     Indication: METASTATIC MALIGNANT MELANOMA
     Dosage: 2MCG/KG
     Route: 058
     Dates: start: 20120301, end: 20120314
  2. RAMIPRIL [Concomitant]
  3. BIOTIN [Concomitant]
  4. SELENIOUS ACID [Concomitant]
  5. SITAGLIPTIN [Concomitant]
  6. YERVOY [Suspect]
     Indication: METASTATIC MALIGNANT MELANOMA
     Dosage: 3 MG/KG
     Route: 042
     Dates: start: 20120301, end: 20120301
  7. CHONDRIOTIN-GLUCOSAMINE [Concomitant]
  8. LOVAZA [Concomitant]
  9. DARIFENICIN [Concomitant]
  10. NATEGLINIDE [Concomitant]
  11. ROSUVASTATIN [Concomitant]
  12. CALCIUM CARBONATE [Concomitant]
  13. CITALOPRAM HYDROBROMIDE [Concomitant]
  14. EZETIMBE [Concomitant]

REACTIONS (3)
  - DIARRHOEA [None]
  - FATIGUE [None]
  - NAUSEA [None]
